FAERS Safety Report 23481687 (Version 2)
Quarter: 2024Q1

REPORT INFORMATION
  Report Type: Spontaneous
  Country: JP (occurrence: JP)
  Receive Date: 20240205
  Receipt Date: 20240212
  Transmission Date: 20240409
  Serious: Yes (Life-Threatening, Hospitalization, Other)
  Sender: FDA-Public Use
  Company Number: JP-Merck Healthcare KGaA-2024005362

PATIENT
  Age: 73 Year
  Sex: Male

DRUGS (10)
  1. METGLUCO [Suspect]
     Active Substance: METFORMIN HYDROCHLORIDE
     Indication: Type 2 diabetes mellitus
     Route: 048
  2. SITAGLIPTIN PHOSPHATE [Suspect]
     Active Substance: SITAGLIPTIN PHOSPHATE
     Indication: Type 2 diabetes mellitus
     Route: 048
  3. IPRAGLIFLOZIN L-PROLINE [Suspect]
     Active Substance: IPRAGLIFLOZIN L-PROLINE
     Indication: Product used for unknown indication
  4. RYBELSUS [Suspect]
     Active Substance: SEMAGLUTIDE
     Indication: Type 2 diabetes mellitus
     Route: 048
  5. INSULIN GLARGINE [Concomitant]
     Active Substance: INSULIN GLARGINE
     Indication: Product used for unknown indication
     Dosage: 14 UNIT
  6. INSULIN GLARGINE [Concomitant]
     Active Substance: INSULIN GLARGINE
     Dosage: 18 UNIT
  7. VALPROATE SODIUM [Concomitant]
     Active Substance: VALPROATE SODIUM
     Indication: Product used for unknown indication
  8. LEVETIRACETAM [Concomitant]
     Active Substance: LEVETIRACETAM
     Indication: Product used for unknown indication
  9. ENALAPRIL [Concomitant]
     Active Substance: ENALAPRIL
     Indication: Product used for unknown indication
  10. VALPROIC ACID [Concomitant]
     Active Substance: VALPROIC ACID
     Indication: Product used for unknown indication

REACTIONS (19)
  - Pneumonia aspiration [Unknown]
  - Necrotising fasciitis [Unknown]
  - Diabetic ketoacidosis [Unknown]
  - Diabetes mellitus inadequate control [Unknown]
  - Prothrombin time shortened [Unknown]
  - International normalised ratio increased [Unknown]
  - Blood fibrinogen increased [Unknown]
  - Blood albumin decreased [Unknown]
  - Blood urea increased [Unknown]
  - Blood uric acid increased [Unknown]
  - Blood triglycerides increased [Unknown]
  - Fibrin D dimer increased [Unknown]
  - Blood creatinine increased [Unknown]
  - Glomerular filtration rate decreased [Unknown]
  - Blood sodium decreased [Unknown]
  - Blood chloride decreased [Unknown]
  - Blood calcium increased [Unknown]
  - High density lipoprotein decreased [Unknown]
  - Contraindicated product administered [Unknown]
